FAERS Safety Report 7672288 (Version 4)
Quarter: 2013Q2

REPORT INFORMATION
  Report Type: Report from Study
  Country: FR (occurrence: FR)
  Receive Date: 20101117
  Receipt Date: 20130612
  Transmission Date: 20140414
  Serious: Yes (Death, Hospitalization)
  Sender: FDA-Public Use
  Company Number: PHHY2010FR75032

PATIENT
  Age: 62 Year
  Sex: Male

DRUGS (1)
  1. STI571 [Suspect]
     Indication: CHRONIC MYELOID LEUKAEMIA
     Dosage: UNK UKN, UNK
     Route: 048
     Dates: start: 20060215, end: 20091013

REACTIONS (7)
  - Respiratory distress [Fatal]
  - Pleural fibrosis [Unknown]
  - Lung cancer metastatic [Unknown]
  - General physical health deterioration [Unknown]
  - Dyspnoea [Unknown]
  - Second primary malignancy [Unknown]
  - Paraneoplastic dermatomyositis [Unknown]
